FAERS Safety Report 5503097-0 (Version None)
Quarter: 2007Q4

REPORT INFORMATION
  Report Type: 
  Country: None (occurrence: None)
  Receive Date: 20071029
  Receipt Date: 20071022
  Transmission Date: 20080405
  Serious: Yes (Hospitalization)
  Sender: FDA-Public Use
  Company Number: 2007-03076

PATIENT
  Sex: Female
  Weight: 78 kg

DRUGS (6)
  1. VELCADE [Suspect]
     Indication: MULTIPLE MYELOMA
     Dosage: 2.00 MG, INTRAVENOUS, 2.60 MG, INTRAVENOUS, 2.50 MG, INTRAVENOUS, 2.00 MG, INTRAVENUS
     Route: 042
     Dates: start: 20051205, end: 20061010
  2. VELCADE [Suspect]
     Indication: MULTIPLE MYELOMA
     Dosage: 2.00 MG, INTRAVENOUS, 2.60 MG, INTRAVENOUS, 2.50 MG, INTRAVENOUS, 2.00 MG, INTRAVENUS
     Route: 042
     Dates: start: 20061013, end: 20061110
  3. VELCADE [Suspect]
     Indication: MULTIPLE MYELOMA
     Dosage: 2.00 MG, INTRAVENOUS, 2.60 MG, INTRAVENOUS, 2.50 MG, INTRAVENOUS, 2.00 MG, INTRAVENUS
     Route: 042
     Dates: start: 20061211, end: 20070111
  4. VELCADE [Suspect]
     Indication: MULTIPLE MYELOMA
     Dosage: 2.00 MG, INTRAVENOUS, 2.60 MG, INTRAVENOUS, 2.50 MG, INTRAVENOUS, 2.00 MG, INTRAVENUS
     Route: 042
     Dates: start: 20070115, end: 20070511
  5. THALIDOMIDE [Concomitant]
  6. DEXAMETHASONE [Concomitant]

REACTIONS (5)
  - BLOOD BICARBONATE DECREASED [None]
  - BLOOD POTASSIUM DECREASED [None]
  - DIARRHOEA [None]
  - DYSKINESIA [None]
  - HYPOTENSION [None]
